FAERS Safety Report 4642592-3 (Version None)
Quarter: 2005Q2

REPORT INFORMATION
  Report Type: 
  Country: None (occurrence: None)
  Receive Date: 20050422
  Receipt Date: 20050404
  Transmission Date: 20051028
  Serious: Yes (Death, Life-Threatening)
  Sender: FDA-Public Use
  Company Number: PHHO2005US05456

PATIENT
  Age: 73 Year
  Sex: Male
  Weight: 71 kg

DRUGS (17)
  1. ATENOLOL [Concomitant]
     Dosage: 50 MG, QD
     Route: 048
  2. VINCRISTINE [Concomitant]
     Indication: MULTIPLE MYELOMA
     Dosage: 0.4 MG, QD
     Route: 042
     Dates: start: 20050323
  3. ADRIAMYCIN PFS [Concomitant]
     Indication: MULTIPLE MYELOMA
     Dosage: 9 MG/M2, QD
     Route: 042
     Dates: start: 20050323
  4. DEXAMETHASONE [Concomitant]
     Indication: MULTIPLE MYELOMA
     Dosage: 40 MG, QD, DAYS 1-4, 9-12, 17-20
     Route: 048
     Dates: start: 20050323
  5. LACTULOSE [Concomitant]
  6. INSULIN [Concomitant]
  7. FERROUS SULFATE TAB [Concomitant]
  8. PHOSPHORUS [Concomitant]
  9. POTASSIUM CHLORIDE [Concomitant]
  10. SODIUM [Concomitant]
  11. HEMORRHOIDAL [Concomitant]
  12. HYDROCORTISONE CREAM (B.P.C.,B.N.F.) [Concomitant]
  13. WARFARIN SODIUM [Concomitant]
     Dosage: 1 MG, QD
     Route: 048
  14. ZOLEDRONATE [Suspect]
     Indication: MULTIPLE MYELOMA
     Dosage: 4 MG, QMO
     Route: 042
     Dates: start: 20050323
  15. OMEPRAZOLE [Concomitant]
     Dosage: 20 MG, QD
     Route: 048
  16. LASIX [Concomitant]
     Dosage: 20 MG, QD
     Route: 042
  17. LEVOFLOXACIN [Concomitant]
     Dosage: 500 MG, QD
     Route: 048

REACTIONS (5)
  - CONVULSION [None]
  - HYPOCALCAEMIA [None]
  - INTUBATION [None]
  - LIFE SUPPORT [None]
  - RESPIRATORY ARREST [None]
